FAERS Safety Report 4637931-3 (Version None)
Quarter: 2005Q2

REPORT INFORMATION
  Report Type: 
  Country: None (occurrence: None)
  Receive Date: 20050418
  Receipt Date: 20050308
  Transmission Date: 20051028
  Serious: Yes (Hospitalization)
  Sender: FDA-Public Use
  Company Number: CH-ROCHE-398070

PATIENT
  Age: 45 Year
  Sex: Male

DRUGS (4)
  1. VALIUM [Suspect]
     Route: 048
     Dates: start: 20050215, end: 20050304
  2. VALIUM [Suspect]
     Dosage: 10 TABLETS.
     Route: 048
     Dates: start: 20050305, end: 20050305
  3. LEXOTANIL [Suspect]
     Route: 048
     Dates: start: 20050215, end: 20050304
  4. LEXOTANIL [Suspect]
     Dosage: 70 TABLETS.
     Route: 048
     Dates: start: 20050305, end: 20050305

REACTIONS (7)
  - COMA [None]
  - CYANOSIS [None]
  - OVERDOSE [None]
  - PSYCHOMOTOR AGITATION [None]
  - RESPIRATORY DEPRESSION [None]
  - SOMNOLENCE [None]
  - SUICIDE ATTEMPT [None]
